FAERS Safety Report 17071630 (Version 2)
Quarter: 2019Q4

REPORT INFORMATION
  Report Type: Spontaneous
  Country: US (occurrence: US)
  Receive Date: 20191125
  Receipt Date: 20191204
  Transmission Date: 20200122
  Serious: Yes (Hospitalization, Other)
  Sender: FDA-Public Use
  Company Number: US-MYLANLABS-2019M1112824

PATIENT
  Age: 63 Year
  Sex: Female

DRUGS (1)
  1. ALPRAZOLAM TABLETS, USP [Suspect]
     Active Substance: ALPRAZOLAM
     Indication: ANXIETY DISORDER
     Dosage: 0.5 MILLIGRAM, TID
     Route: 048
     Dates: end: 20191112

REACTIONS (6)
  - Hypertension [Recovering/Resolving]
  - Feeling abnormal [Not Recovered/Not Resolved]
  - Gastrointestinal infection [Recovering/Resolving]
  - Recalled product administered [Recovered/Resolved]
  - Off label use [Not Recovered/Not Resolved]
  - Rectal haemorrhage [Recovered/Resolved]

NARRATIVE: CASE EVENT DATE: 20191026
